FAERS Safety Report 24348364 (Version 3)
Quarter: 2024Q4

REPORT INFORMATION
  Report Type: Spontaneous
  Country: US (occurrence: US)
  Receive Date: 20240923
  Receipt Date: 20241209
  Transmission Date: 20250115
  Serious: No
  Sender: ROCHE
  Company Number: US-ROCHE-10000086051

PATIENT
  Age: 64 Year
  Sex: Female
  Weight: 74.39 kg

DRUGS (3)
  1. XOLAIR [Suspect]
     Active Substance: OMALIZUMAB
     Indication: Idiopathic urticaria
     Route: 058
  2. XOLAIR [Suspect]
     Active Substance: OMALIZUMAB
     Indication: Urticaria chronic
     Route: 058
     Dates: start: 202405
  3. XOLAIR [Suspect]
     Active Substance: OMALIZUMAB
     Route: 058
     Dates: start: 202410

REACTIONS (9)
  - Injection site pain [Unknown]
  - Urticaria [Unknown]
  - Device failure [Unknown]
  - Injection site discharge [Unknown]
  - Device issue [Unknown]
  - Incorrect dose administered [Unknown]
  - Underdose [Unknown]
  - Accidental exposure to product [Unknown]
  - Arthralgia [Not Recovered/Not Resolved]

NARRATIVE: CASE EVENT DATE: 20241102
